FAERS Safety Report 8986541 (Version 1)
Quarter: 2012Q4

REPORT INFORMATION
  Report Type: 
  Country: US (occurrence: US)
  Receive Date: 20121226
  Receipt Date: 20121226
  Transmission Date: 20130627
  Serious: Yes (Other)
  Sender: FDA-Public Use
  Company Number: US-TEVA-377601USA

PATIENT
  Age: 54 Year
  Sex: Female

DRUGS (3)
  1. TREANDA [Suspect]
     Indication: B-CELL LYMPHOMA
     Dosage: Cyclic
     Route: 042
  2. RITUXIMAB [Suspect]
     Indication: B-CELL LYMPHOMA
     Dosage: Cyclic
     Route: 042
  3. UNSPECIFIED INGREDIENT [Suspect]
     Dosage: Day 1 and 15

REACTIONS (1)
  - Myelodysplastic syndrome [Unknown]
